FAERS Safety Report 8546048-7 (Version None)
Quarter: 2012Q3

REPORT INFORMATION
  Report Type: 
  Country: None (occurrence: None)
  Receive Date: 20120727
  Receipt Date: 20111208
  Transmission Date: 20120928
  Serious: No
  Sender: FDA-Public Use
  Company Number: US-ASTRAZENECA-2011SE73468

PATIENT
  Age: 59 Year
  Sex: Female
  Weight: 77.1 kg

DRUGS (6)
  1. LORAZEPAM [Concomitant]
  2. SEROQUEL [Suspect]
     Route: 048
  3. PREMPRO [Concomitant]
     Indication: BLOOD OESTROGEN
  4. SEROQUEL [Suspect]
     Indication: SCHIZOPHRENIA
     Route: 048
  5. PROZAC [Concomitant]
  6. SEROQUEL [Suspect]
     Route: 048

REACTIONS (3)
  - EAR PAIN [None]
  - FUNGAL INFECTION [None]
  - DRY MOUTH [None]
